FAERS Safety Report 18933541 (Version 1)
Quarter: 2021Q1

REPORT INFORMATION
  Report Type: Spontaneous
  Country: US (occurrence: US)
  Receive Date: 20210223
  Receipt Date: 20210223
  Transmission Date: 20210420
  Serious: No
  Sender: FDA-Public Use
  Company Number: None

PATIENT
  Age: 75 Year
  Sex: Female
  Weight: 60.3 kg

DRUGS (1)
  1. OCTREOTIDE ACETATE INJECTION, SOLUTION [Suspect]
     Active Substance: OCTREOTIDE ACETATE
     Route: 040
     Dates: start: 20210129, end: 20210203

REACTIONS (1)
  - Intentional product use issue [None]

NARRATIVE: CASE EVENT DATE: 20210201
